FAERS Safety Report 4399366-0 (Version None)
Quarter: 2004Q3

REPORT INFORMATION
  Report Type: 
  Country: None (occurrence: None)
  Receive Date: 20040712
  Receipt Date: 20040623
  Transmission Date: 20050211
  Serious: Yes (Hospitalization)
  Sender: FDA-Public Use
  Company Number: D01200402331

PATIENT
  Age: 70 Year
  Sex: 0

DRUGS (8)
  1. (FONDAPARINUX) - SOLUTION - UNIT DOSE:  UNKNOWN [Suspect]
     Indication: ANGINA UNSTABLE
     Dosage: 2.5 MG QD SUBCUTANEOUS
     Route: 058
  2. (FONDAPARINUX) - SOLUTION - UNIT DOSE:  UNKNOWN [Suspect]
     Indication: MYOCARDIAL INFARCTION
     Dosage: 2.5 MG QD SUBCUTANEOUS
     Route: 058
  3. ASPIRIN [Concomitant]
  4. PLAVIX [Concomitant]
  5. RAMIPRIL [Concomitant]
  6. CONCOR (BISOPROLOL FUMARATE) [Concomitant]
  7. SIMVASTATIN [Concomitant]
  8. PANTOLOC (PANTOPRAZOLE SODIUM) [Concomitant]

REACTIONS (2)
  - CATHETER RELATED COMPLICATION [None]
  - EMBOLISM [None]
